FAERS Safety Report 10337885 (Version 1)
Quarter: 2014Q3

REPORT INFORMATION
  Report Type: Spontaneous
  Country: US (occurrence: US)
  Receive Date: 20140724
  Receipt Date: 20140724
  Transmission Date: 20150326
  Serious: No
  Sender: FDA-Public Use
  Company Number: US-UNITED THERAPEUTICS-UTC-045023

PATIENT
  Sex: Female
  Weight: 49.89 kg

DRUGS (1)
  1. REMODULIN [Suspect]
     Active Substance: TREPROSTINIL
     Dosage: 0.030 UG/KG/MINUTE
     Route: 058
     Dates: start: 20140205

REACTIONS (3)
  - Infusion site pain [Unknown]
  - Pain in extremity [Unknown]
  - Headache [Unknown]
